FAERS Safety Report 10914226 (Version 4)
Quarter: 2017Q1

REPORT INFORMATION
  Report Type: Spontaneous
  Country: US (occurrence: US)
  Receive Date: 20150313
  Receipt Date: 20170228
  Transmission Date: 20170428
  Serious: Yes (Other)
  Sender: FDA-Public Use
  Company Number: US-PFIZER INC-2015090857

PATIENT
  Age: 56 Year
  Sex: Female
  Weight: 62.59 kg

DRUGS (12)
  1. LYRICA [Suspect]
     Active Substance: PREGABALIN
     Indication: NERVE INJURY
  2. ALBUTEROL SULFATE HFA [Concomitant]
     Active Substance: ALBUTEROL SULFATE
     Indication: DYSPNOEA
     Dosage: 290 MCG/ACTUATION INHALER; INHALES 2 PUFFS IN TO THE LUNGS EVERY 6(SIX) HOURS AS NEEDED
     Route: 055
  3. DESYREL [Concomitant]
     Active Substance: TRAZODONE HYDROCHLORIDE
     Dosage: 50 MG, 2X/DAY
     Route: 048
  4. CELEXA [Concomitant]
     Active Substance: CITALOPRAM HYDROBROMIDE
     Dosage: 20 MG, DAILY
     Route: 048
  5. ROBAXIN [Concomitant]
     Active Substance: METHOCARBAMOL
     Indication: MUSCULOSKELETAL DISCOMFORT
     Dosage: 750 MG, AS NEEDED (TAKE 1 TAB BY MOUTH 2 (TWO) TIMES DAILY  )
     Route: 048
  6. LYRICA [Suspect]
     Active Substance: PREGABALIN
     Indication: FIBROMYALGIA
     Dosage: 150 MG, 2X/DAY
     Route: 048
     Dates: start: 201411
  7. PROTONIX [Concomitant]
     Active Substance: PANTOPRAZOLE SODIUM
     Dosage: 40 MG, 1X/DAY (EVERY MORNING BEFORE BREAKFAST)
     Route: 048
  8. ALBUTEROL SULFATE HFA [Concomitant]
     Active Substance: ALBUTEROL SULFATE
     Indication: WHEEZING
  9. PERCOCET [Concomitant]
     Active Substance: ACETAMINOPHEN\OXYCODONE HYDROCHLORIDE
     Indication: PAIN
     Dosage: 1 DF, AS NEEDED [OXYCODONE 10 MG]/ [ACETAMINOPHEN 325MG] (TAKE ONE TABLET EVERY 4-6 HOURS)
  10. ZOFRAN [Concomitant]
     Active Substance: ONDANSETRON HYDROCHLORIDE
     Indication: NAUSEA
     Dosage: 8 MG, AS NEEDED (TAKE 1 TAB BY MOUTH EVERY 8 (EIGHT) HOURS )
     Route: 048
  11. LIPITOR [Concomitant]
     Active Substance: ATORVASTATIN CALCIUM
     Dosage: 40 MG, 1X/DAY
     Route: 048
  12. FLONASE [Concomitant]
     Active Substance: FLUTICASONE PROPIONATE
     Dosage: 50 MCG/ ACTUATION NASAL SPRAY; PLACE 2 SPRAYS INTO THE NOSTRIL(S) ONCE DAILY
     Route: 045

REACTIONS (13)
  - Tremor [Not Recovered/Not Resolved]
  - Insomnia [Not Recovered/Not Resolved]
  - Irritability [Not Recovered/Not Resolved]
  - Tooth disorder [Unknown]
  - Feeling abnormal [Not Recovered/Not Resolved]
  - Withdrawal syndrome [Not Recovered/Not Resolved]
  - Hypokinesia [Unknown]
  - Chills [Unknown]
  - Abdominal pain upper [Not Recovered/Not Resolved]
  - Feeding disorder [Not Recovered/Not Resolved]
  - Nausea [Unknown]
  - Pain [Not Recovered/Not Resolved]
  - Malaise [Not Recovered/Not Resolved]

NARRATIVE: CASE EVENT DATE: 20150305
